FAERS Safety Report 10465954 (Version 1)
Quarter: 2014Q3

REPORT INFORMATION
  Report Type: Spontaneous
  Country: US (occurrence: US)
  Receive Date: 20140922
  Receipt Date: 20140922
  Transmission Date: 20150326
  Serious: No
  Sender: FDA-Public Use
  Company Number: US-TEVA-481201USA

PATIENT

DRUGS (1)
  1. PACLITAXEL. [Suspect]
     Active Substance: PACLITAXEL

REACTIONS (4)
  - Abdominal discomfort [Unknown]
  - Erythema [Unknown]
  - Feeling hot [Unknown]
  - Dyspnoea [Unknown]
